FAERS Safety Report 10382778 (Version 1)
Quarter: 2014Q3

REPORT INFORMATION
  Report Type: Spontaneous
  Country: US (occurrence: US)
  Receive Date: 20140813
  Receipt Date: 20140813
  Transmission Date: 20150326
  Serious: No
  Sender: FDA-Public Use
  Company Number: US-SA-2013SA098901

PATIENT
  Age: 7 Year
  Sex: Male
  Weight: 23.13 kg

DRUGS (8)
  1. HEPARIN [Concomitant]
     Active Substance: HEPARIN SODIUM
  2. FABRAZYME [Suspect]
     Active Substance: AGALSIDASE BETA
     Indication: FABRY^S DISEASE
     Route: 042
     Dates: start: 20120616
  3. SODIUM CHLORIDE. [Concomitant]
     Active Substance: SODIUM CHLORIDE
  4. LIDOCAINE/PRILOCAINE [Concomitant]
  5. EPIPEN [Concomitant]
     Active Substance: EPINEPHRINE
  6. WATER FOR INJECTION [Concomitant]
     Active Substance: WATER
  7. CEPHALEXIN. [Concomitant]
     Active Substance: CEPHALEXIN
  8. DIPHENHYDRAMINE [Concomitant]
     Active Substance: DIPHENHYDRAMINE

REACTIONS (2)
  - Pyrexia [Unknown]
  - Abdominal pain upper [Unknown]

NARRATIVE: CASE EVENT DATE: 20130926
